FAERS Safety Report 24680144 (Version 1)
Quarter: 2024Q4

REPORT INFORMATION
  Report Type: Spontaneous
  Country: US (occurrence: US)
  Receive Date: 20241129
  Receipt Date: 20241129
  Transmission Date: 20250115
  Serious: Yes (Other)
  Sender: BRACCO
  Company Number: US-BRACCO-2024US00071

PATIENT
  Age: 20 Year
  Sex: Female

DRUGS (24)
  1. LUMASON [Suspect]
     Active Substance: SULFUR HEXAFLUORIDE
     Indication: Echocardiogram
     Dosage: 1.5 ML, SINGLE
     Route: 042
     Dates: start: 20240105, end: 20240105
  2. LUMASON [Suspect]
     Active Substance: SULFUR HEXAFLUORIDE
     Indication: Echocardiogram
     Dosage: 1.5 ML, SINGLE
     Route: 042
     Dates: start: 20240105, end: 20240105
  3. LUMASON [Suspect]
     Active Substance: SULFUR HEXAFLUORIDE
     Indication: Echocardiogram
     Dosage: 1.5 ML, SINGLE
     Route: 042
     Dates: start: 20240105, end: 20240105
  4. ALBUTEROL [Concomitant]
     Active Substance: ALBUTEROL
  5. APRESOLINE HYDROCHLORIDE [Concomitant]
     Active Substance: HYDRALAZINE HYDROCHLORIDE
  6. PROCHLORPERAZINE EDISYLATE [Concomitant]
     Active Substance: PROCHLORPERAZINE EDISYLATE
  7. DULCOLAX (BISACODYL) [Concomitant]
     Active Substance: BISACODYL
  8. LACTOBACILLUS ACIDOPHILUS\LACTOBACILLUS DELBRUECKII SUBSP. BULGARICUS [Concomitant]
     Active Substance: LACTOBACILLUS ACIDOPHILUS\LACTOBACILLUS DELBRUECKII SUBSP. BULGARICUS
  9. LASIX [Concomitant]
     Active Substance: FUROSEMIDE
  10. LEVOFLOXACIN [Concomitant]
     Active Substance: LEVOFLOXACIN
  11. MAGNESIUM [Concomitant]
     Active Substance: MAGNESIUM
  12. MELATONIN [Concomitant]
     Active Substance: MELATONIN
  13. MORPHINE [Concomitant]
     Active Substance: MORPHINE
  14. NARCAN [Concomitant]
     Active Substance: NALOXONE HYDROCHLORIDE
  15. NITROGLYCERIN [Concomitant]
     Active Substance: NITROGLYCERIN
  16. NYSTATIN [Concomitant]
     Active Substance: NYSTATIN
  17. OXYGEN [Concomitant]
     Active Substance: OXYGEN
     Dosage: HIGH FLOW
  18. POTASSIUM [Concomitant]
     Active Substance: POTASSIUM
  19. SODIUM CHLORIDE [Concomitant]
     Active Substance: SODIUM CHLORIDE
  20. SODIUM PHOSPHATE [Concomitant]
     Active Substance: SODIUM PHOSPHATE
  21. TYLENOL [Concomitant]
     Active Substance: ACETAMINOPHEN
  22. VANCOMYCIN [Concomitant]
     Active Substance: VANCOMYCIN
  23. ZOFRAN [Concomitant]
     Active Substance: ONDANSETRON HYDROCHLORIDE
  24. ZYVOX [Concomitant]
     Active Substance: LINEZOLID

REACTIONS (7)
  - Unresponsive to stimuli [Recovered/Resolved]
  - Oxygen saturation decreased [Recovered/Resolved]
  - Heart rate decreased [Recovered/Resolved]
  - Dizziness [Recovered/Resolved]
  - Pain [Recovered/Resolved]
  - Nausea [Recovered/Resolved]
  - Heart rate increased [Recovered/Resolved]

NARRATIVE: CASE EVENT DATE: 20240105
